FAERS Safety Report 9114203 (Version 1)
Quarter: 2013Q1

REPORT INFORMATION
  Report Type: Spontaneous
  Country: GB (occurrence: GB)
  Receive Date: 20130208
  Receipt Date: 20130208
  Transmission Date: 20140127
  Serious: Yes (Disabling, Other)
  Sender: FDA-Public Use
  Company Number: GB-ASTRAZENECA-2013SE07727

PATIENT
  Age: 68 Year
  Sex: Male
  Weight: 95.2 kg

DRUGS (5)
  1. ROSUVASTATIN CALCIUM [Suspect]
     Indication: BLOOD CHOLESTEROL INCREASED
     Route: 048
     Dates: start: 20100505
  2. DOXAZOSIN [Concomitant]
  3. LEVOTHYROXINE [Concomitant]
  4. VENTOLIN [Concomitant]
  5. VIAZEM XL [Concomitant]

REACTIONS (4)
  - Paraesthesia [Not Recovered/Not Resolved]
  - Hypoaesthesia [Unknown]
  - Myalgia [Not Recovered/Not Resolved]
  - Musculoskeletal pain [Unknown]
